FAERS Safety Report 13707988 (Version 1)
Quarter: 2017Q2

REPORT INFORMATION
  Report Type: Spontaneous
  Country: FR (occurrence: FR)
  Receive Date: 20170630
  Receipt Date: 20170630
  Transmission Date: 20170830
  Serious: Yes (Hospitalization, Other)
  Sender: FDA-Public Use
  Company Number: FR-BAXTER-2017BAX026414

PATIENT
  Age: 49 Year
  Sex: Male

DRUGS (16)
  1. GEMCITABINE [Suspect]
     Active Substance: GEMCITABINE\GEMCITABINE HYDROCHLORIDE
     Route: 042
     Dates: start: 20161122, end: 20161122
  2. ROMIDEPSIN [Suspect]
     Active Substance: ROMIDEPSIN
     Indication: T-CELL LYMPHOMA
     Route: 042
     Dates: start: 20170419, end: 20170419
  3. ROMIDEPSIN [Suspect]
     Active Substance: ROMIDEPSIN
     Route: 042
     Dates: start: 20170503, end: 20170503
  4. BENDAMUSTINE ACCORD [Suspect]
     Active Substance: BENDAMUSTINE
     Route: 042
     Dates: start: 20170130, end: 20170131
  5. ETOPOSIDE MYLAN [Suspect]
     Active Substance: ETOPOSIDE
     Indication: T-CELL LYMPHOMA
     Route: 042
     Dates: start: 20170222, end: 20170223
  6. GEMCITABINE [Suspect]
     Active Substance: GEMCITABINE\GEMCITABINE HYDROCHLORIDE
     Route: 042
     Dates: start: 20161205, end: 20161205
  7. ROMIDEPSIN [Suspect]
     Active Substance: ROMIDEPSIN
     Route: 042
     Dates: start: 20170517, end: 20170517
  8. ROMIDEPSIN [Suspect]
     Active Substance: ROMIDEPSIN
     Route: 042
     Dates: start: 20170531, end: 20170531
  9. OXALIPLATINE HOSPIRA [Suspect]
     Active Substance: OXALIPLATIN
     Indication: T-CELL LYMPHOMA
     Route: 042
     Dates: start: 20161108, end: 20161108
  10. BENDAMUSTINE ACCORD [Suspect]
     Active Substance: BENDAMUSTINE
     Indication: T-CELL LYMPHOMA
     Route: 042
     Dates: start: 20170109, end: 20170110
  11. HOLOXAN 2000 MG, POUDRE POUR USAGE PARENT?RAL [Suspect]
     Active Substance: IFOSFAMIDE
     Indication: T-CELL LYMPHOMA
     Route: 042
     Dates: start: 20170222, end: 20170223
  12. OXALIPLATINE HOSPIRA [Suspect]
     Active Substance: OXALIPLATIN
     Route: 042
     Dates: start: 20161205, end: 20161205
  13. ETOPOSIDE MYLAN [Suspect]
     Active Substance: ETOPOSIDE
     Route: 042
     Dates: start: 20170315, end: 20170316
  14. HOLOXAN 2000 MG, POUDRE POUR USAGE PARENT?RAL [Suspect]
     Active Substance: IFOSFAMIDE
     Route: 042
     Dates: start: 20170315, end: 20170316
  15. GEMCITABINE [Suspect]
     Active Substance: GEMCITABINE\GEMCITABINE HYDROCHLORIDE
     Indication: T-CELL LYMPHOMA
     Route: 042
     Dates: start: 20161108, end: 20161108
  16. OXALIPLATINE HOSPIRA [Suspect]
     Active Substance: OXALIPLATIN
     Route: 042
     Dates: start: 20161122, end: 20161122

REACTIONS (4)
  - Second primary malignancy [Not Recovered/Not Resolved]
  - Abdominal pain [Unknown]
  - Mesenteric vein thrombosis [Unknown]
  - Acute myeloid leukaemia [Not Recovered/Not Resolved]

NARRATIVE: CASE EVENT DATE: 20170518
